FAERS Safety Report 13609188 (Version 11)
Quarter: 2018Q4

REPORT INFORMATION
  Report Type: Report from Study
  Country: ZA (occurrence: ZA)
  Receive Date: 20170602
  Receipt Date: 20181106
  Transmission Date: 20190204
  Serious: Yes (Hospitalization, Other)
  Sender: FDA-Public Use
  Company Number: ZA-BRISTOL-MYERS SQUIBB COMPANY-BMS-2017-047812

PATIENT
  Age: 75 Year
  Sex: Female

DRUGS (2)
  1. ABATACEPT [Suspect]
     Active Substance: ABATACEPT
     Indication: PRODUCT USED FOR UNKNOWN INDICATION
     Dosage: 500 MG, QMO
     Route: 042
     Dates: start: 20140901
  2. ABATACEPT [Suspect]
     Active Substance: ABATACEPT
     Indication: RHEUMATOID ARTHRITIS
     Dosage: 500 MG, QMO
     Route: 042
     Dates: start: 20140926

REACTIONS (10)
  - Abdominal pain upper [Recovering/Resolving]
  - Cerebral haemorrhage [Recovering/Resolving]
  - Flatulence [Recovering/Resolving]
  - Influenza [Recovered/Resolved]
  - Gastroenteritis viral [Not Recovered/Not Resolved]
  - Intentional dose omission [Unknown]
  - Eye disorder [Recovering/Resolving]
  - Cataract [Not Recovered/Not Resolved]
  - Generalised oedema [Recovering/Resolving]
  - Eye haemorrhage [Unknown]

NARRATIVE: CASE EVENT DATE: 20171025
